FAERS Safety Report 6567059-7 (Version None)
Quarter: 2010Q1

REPORT INFORMATION
  Report Type: 
  Country: None (occurrence: None)
  Receive Date: 20100128
  Receipt Date: 20100113
  Transmission Date: 20100710
  Serious: Yes (Hospitalization)
  Sender: FDA-Public Use
  Company Number: 2010AC000010

PATIENT
  Age: 65 Year
  Sex: Male
  Weight: 94.3482 kg

DRUGS (19)
  1. DIGOXIN [Suspect]
     Dosage: .25 MG;QD;PO
     Route: 048
  2. XOPENEX [Concomitant]
  3. ATROVENT [Concomitant]
  4. SOLU-MEDROL [Concomitant]
  5. FUROSEMIDE [Concomitant]
  6. OMEPRAZOLE [Concomitant]
  7. WARFARIN SODIUM [Concomitant]
  8. CARVEDILOL [Concomitant]
  9. ISOSORIBIDE [Concomitant]
  10. TRAZODONE HCL [Concomitant]
  11. LYRICA [Concomitant]
  12. LOVASTATIN [Concomitant]
  13. LISINOPRIL [Concomitant]
  14. ADVAIR DISKUS 100/50 [Concomitant]
  15. LANTUS [Concomitant]
  16. APRIDA [Concomitant]
  17. PREDNISONE [Concomitant]
  18. SINGULAIR [Concomitant]
  19. ZAROXOLYN [Concomitant]

REACTIONS (9)
  - ANHEDONIA [None]
  - ANXIETY [None]
  - CARDIAC FAILURE CONGESTIVE [None]
  - CARDIOMEGALY [None]
  - CHRONIC OBSTRUCTIVE PULMONARY DISEASE [None]
  - INJURY [None]
  - LEFT ATRIAL DILATATION [None]
  - PAIN [None]
  - URTICARIA [None]
